FAERS Safety Report 10557917 (Version 1)
Quarter: 2014Q4

REPORT INFORMATION
  Report Type: Spontaneous
  Country: GB (occurrence: GB)
  Receive Date: 20141031
  Receipt Date: 20141031
  Transmission Date: 20150529
  Serious: No
  Sender: FDA-Public Use
  Company Number: GB-009507513-1410GBR016228

PATIENT
  Age: 67 Year
  Sex: Female

DRUGS (1)
  1. ZOCOR [Suspect]
     Active Substance: SIMVASTATIN
     Indication: BLOOD CHOLESTEROL INCREASED
     Dosage: UNK

REACTIONS (8)
  - Fatigue [Unknown]
  - Muscular weakness [Unknown]
  - Insomnia [Unknown]
  - Balance disorder [Unknown]
  - Myalgia [Unknown]
  - Quality of life decreased [Unknown]
  - Rash [Unknown]
  - Pruritus [Unknown]
